FAERS Safety Report 8023633-2 (Version None)
Quarter: 2012Q1

REPORT INFORMATION
  Report Type: 
  Country: None (occurrence: None)
  Receive Date: 20120105
  Receipt Date: 20111230
  Transmission Date: 20120608
  Serious: Yes (Hospitalization)
  Sender: FDA-Public Use
  Company Number: US-SHIRE-ALL1-2011-05162

PATIENT
  Sex: Male
  Weight: 136.5 kg

DRUGS (4)
  1. UNKNOWN ALLERGY MEDICATION [Concomitant]
     Indication: HYPERSENSITIVITY
     Dosage: UNK UNK, 1X/DAY:QD
     Route: 048
  2. VYVANSE [Suspect]
     Dosage: UNK, ONE DOSE
     Route: 048
     Dates: start: 20111229, end: 20111229
  3. VYVANSE [Suspect]
     Indication: PRODUCT USED FOR UNKNOWN INDICATION
     Dosage: UNK UNK, 1X/DAY:QD
     Route: 048
     Dates: start: 20111201
  4. VYVANSE [Suspect]
     Dosage: UNK, 1X/DAY:QD
     Route: 048
     Dates: end: 20111201

REACTIONS (3)
  - INTENTIONAL OVERDOSE [None]
  - COGNITIVE DISORDER [None]
  - SUICIDE ATTEMPT [None]
